FAERS Safety Report 18713334 (Version 1)
Quarter: 2021Q1

REPORT INFORMATION
  Report Type: Spontaneous
  Country: US (occurrence: US)
  Receive Date: 20210107
  Receipt Date: 20210107
  Transmission Date: 20210419
  Serious: Yes (Death, Hospitalization)
  Sender: FDA-Public Use
  Company Number: US-BAYER-2021-002480

PATIENT
  Age: 76 Year
  Sex: Male

DRUGS (3)
  1. ACETYLSALICYLIC ACID [Suspect]
     Active Substance: ASPIRIN
     Dosage: UNK
     Route: 048
  2. NAPROXEN SODIUM ({= 220 MG) [Suspect]
     Active Substance: NAPROXEN SODIUM
     Dosage: UNK
     Route: 048
  3. PARACETAMOL [Suspect]
     Active Substance: ACETAMINOPHEN
     Route: 048

REACTIONS (3)
  - Intentional product misuse [Fatal]
  - Intentional overdose [Fatal]
  - Toxicity to various agents [Fatal]
